FAERS Safety Report 15387467 (Version 1)
Quarter: 2018Q3

REPORT INFORMATION
  Report Type: Report from Study
  Country: US (occurrence: US)
  Receive Date: 20180914
  Receipt Date: 20180914
  Transmission Date: 20181010
  Serious: Yes (Hospitalization, Other)
  Sender: FDA-Public Use
  Company Number: US-GILEAD-2018-0362264

PATIENT
  Age: 86 Year
  Sex: Female

DRUGS (17)
  1. MECLIZINE [Concomitant]
     Active Substance: MECLIZINE HYDROCHLORIDE
  2. VITAMINS WITH MINERALS [Concomitant]
     Active Substance: MINERALS\VITAMINS
  3. COLACE [Concomitant]
     Active Substance: DOCUSATE SODIUM
  4. PREDNISONE. [Concomitant]
     Active Substance: PREDNISONE
  5. IDELALISIB [Suspect]
     Active Substance: IDELALISIB
     Indication: CHRONIC LYMPHOCYTIC LEUKAEMIA
     Dosage: 1 DF, BID
     Route: 048
     Dates: start: 20180316
  6. TYLENOL [Concomitant]
     Active Substance: ACETAMINOPHEN
  7. LOSARTAN. [Concomitant]
     Active Substance: LOSARTAN
  8. HYDROCHLOROTHIAZIDE. [Concomitant]
     Active Substance: HYDROCHLOROTHIAZIDE
  9. ASCORBIC ACID. [Concomitant]
     Active Substance: ASCORBIC ACID
  10. IBUPROFEN. [Concomitant]
     Active Substance: IBUPROFEN
  11. PRILOSEC [Concomitant]
     Active Substance: OMEPRAZOLE MAGNESIUM
  12. CYANOCOBALAMIN. [Concomitant]
     Active Substance: CYANOCOBALAMIN
  13. NAPROXEN. [Concomitant]
     Active Substance: NAPROXEN
  14. METOPROLOL. [Concomitant]
     Active Substance: METOPROLOL
  15. MIRALAX [Concomitant]
     Active Substance: POLYETHYLENE GLYCOL 3350
  16. AMLODIPINE [Concomitant]
     Active Substance: AMLODIPINE BESYLATE
  17. ATIVAN [Concomitant]
     Active Substance: LORAZEPAM

REACTIONS (1)
  - Diverticulitis [Unknown]

NARRATIVE: CASE EVENT DATE: 20180906
